FAERS Safety Report 11319515 (Version 1)
Quarter: 2015Q3

REPORT INFORMATION
  Report Type: Spontaneous
  Country: GB (occurrence: GB)
  Receive Date: 20150729
  Receipt Date: 20150729
  Transmission Date: 20151125
  Serious: Yes (Death, Other)
  Sender: FDA-Public Use
  Company Number: PHHY2015GB089845

PATIENT
  Age: 57 Year
  Sex: Female

DRUGS (1)
  1. IMATINIB [Suspect]
     Active Substance: IMATINIB
     Indication: GASTROINTESTINAL STROMAL TUMOUR
     Route: 065

REACTIONS (5)
  - Gastrointestinal stromal tumour [Unknown]
  - Recurrent cancer [Unknown]
  - Metastases to liver [Unknown]
  - Thyroid cancer [Fatal]
  - Second primary malignancy [Fatal]
